FAERS Safety Report 6757650-7 (Version None)
Quarter: 2010Q2

REPORT INFORMATION
  Report Type: 
  Country: None (occurrence: None)
  Receive Date: 20100607
  Receipt Date: 20100526
  Transmission Date: 20101027
  Serious: Yes (Other)
  Sender: FDA-Public Use
  Company Number: NZ-JNJFOC-20100510111

PATIENT
  Sex: Female
  Weight: 83 kg

DRUGS (12)
  1. BLINDED; GOLIMUMA [Suspect]
     Indication: RHEUMATOID ARTHRITIS
     Route: 042
  2. BLINDED; GOLIMUMA [Suspect]
     Route: 042
  3. PLACEBO [Suspect]
     Indication: RHEUMATOID ARTHRITIS
  4. PLACEBO [Suspect]
  5. FOLIC ACID [Concomitant]
     Indication: PROPHYLAXIS
  6. MAXIDEX (EYE DROPS) [Concomitant]
     Indication: CORNEAL TRANSPLANT
  7. ETIDRONATE DISODIUM [Concomitant]
     Indication: OSTEOPOROSIS
  8. CALCIUM CARBONATE [Concomitant]
     Indication: OSTEOPOROSIS
  9. CHOLECALCIFEROL [Concomitant]
     Indication: OSTEOPOROSIS
  10. PARACETAMOL [Concomitant]
     Indication: RHEUMATOID ARTHRITIS
  11. DILTIAZEM [Concomitant]
     Indication: RAYNAUD'S PHENOMENON
  12. DILTIAZEM [Concomitant]
     Indication: RAYNAUD'S PHENOMENON

REACTIONS (1)
  - LUNG ADENOCARCINOMA [None]
